FAERS Safety Report 4307198-4 (Version None)
Quarter: 2004Q1

REPORT INFORMATION
  Report Type: 
  Country: None (occurrence: None)
  Receive Date: 20040225
  Receipt Date: 20040217
  Transmission Date: 20041129
  Serious: No
  Sender: FDA-Public Use
  Company Number: 2004UW02857

PATIENT
  Age: 27 Year
  Sex: Male

DRUGS (1)
  1. TENORMIN [Suspect]
     Indication: TACHYCARDIA

REACTIONS (2)
  - ABDOMINAL ADHESIONS [None]
  - INTRA-ABDOMINAL HAEMORRHAGE [None]
